FAERS Safety Report 7125679-5 (Version None)
Quarter: 2010Q4

REPORT INFORMATION
  Report Type: 
  Country: None (occurrence: None)
  Receive Date: 20101112
  Receipt Date: 20101105
  Transmission Date: 20110411
  Serious: Yes (Other)
  Sender: FDA-Public Use
  Company Number: 016764

PATIENT
  Age: 59 Year
  Sex: Female

DRUGS (1)
  1. ISOKET (ISOKET) [Suspect]
     Dosage: (0.5MG/ML)

REACTIONS (4)
  - CARDIAC FAILURE [None]
  - DIABETES MELLITUS INADEQUATE CONTROL [None]
  - MALAISE [None]
  - RENAL FAILURE [None]
